FAERS Safety Report 9587274 (Version 1)
Quarter: 2013Q4

REPORT INFORMATION
  Report Type: Spontaneous
  Country: CN (occurrence: CN)
  Receive Date: 20131003
  Receipt Date: 20131003
  Transmission Date: 20140711
  Serious: Yes (Other)
  Sender: FDA-Public Use
  Company Number: PHHY2013CN108534

PATIENT
  Age: 98 Year
  Sex: Male

DRUGS (3)
  1. CITALOPRAM [Suspect]
     Dosage: 2.5 MG, UNK
  2. AMIODARONE [Interacting]
     Dosage: 200 MG, QD
  3. LINEZOLID [Interacting]
     Dosage: 600 MG, Q12H
     Route: 042

REACTIONS (12)
  - Respiratory depression [Recovered/Resolved]
  - Serotonin syndrome [Recovered/Resolved]
  - Dyspnoea [Recovered/Resolved]
  - Hyperhidrosis [Recovered/Resolved]
  - Tremor [Recovered/Resolved]
  - Agitation [Recovered/Resolved]
  - Confusional state [Recovered/Resolved]
  - Delirium [Recovered/Resolved]
  - Hallucination, auditory [Recovered/Resolved]
  - Myoclonus [Recovered/Resolved]
  - Hyperreflexia [Recovered/Resolved]
  - Drug interaction [Unknown]
